FAERS Safety Report 4349865-2 (Version None)
Quarter: 2004Q2

REPORT INFORMATION
  Report Type: 
  Country: None (occurrence: None)
  Receive Date: 20040426
  Receipt Date: 20040413
  Transmission Date: 20050107
  Serious: Yes (Life-Threatening, Hospitalization)
  Sender: FDA-Public Use
  Company Number: CA-JNJFOC-20030801467

PATIENT
  Age: 69 Year
  Sex: Female
  Weight: 46 kg

DRUGS (16)
  1. REMICADE [Suspect]
     Indication: RHEUMATOID ARTHRITIS
     Dosage: 200 MG, 1 IN 8 WEEK, INTRAVENOUS; SEE IMAGE
     Route: 042
     Dates: start: 20010206
  2. REMICADE [Suspect]
     Indication: RHEUMATOID ARTHRITIS
     Dosage: 200 MG, 1 IN 8 WEEK, INTRAVENOUS; SEE IMAGE
     Route: 042
     Dates: start: 20010221
  3. REMICADE [Suspect]
     Indication: RHEUMATOID ARTHRITIS
     Dosage: 200 MG, 1 IN 8 WEEK, INTRAVENOUS; SEE IMAGE
     Route: 042
     Dates: start: 20010320
  4. REMICADE [Suspect]
     Indication: RHEUMATOID ARTHRITIS
     Dosage: 200 MG, 1 IN 8 WEEK, INTRAVENOUS; SEE IMAGE
     Route: 042
     Dates: start: 20010514
  5. REMICADE [Suspect]
     Indication: RHEUMATOID ARTHRITIS
     Dosage: 200 MG, 1 IN 8 WEEK, INTRAVENOUS; SEE IMAGE
     Route: 042
     Dates: start: 20010709
  6. REMICADE [Suspect]
     Indication: RHEUMATOID ARTHRITIS
     Dosage: 200 MG, 1 IN 8 WEEK, INTRAVENOUS; SEE IMAGE
     Route: 042
     Dates: start: 20010904
  7. REMICADE [Suspect]
     Indication: RHEUMATOID ARTHRITIS
     Dosage: 200 MG, 1 IN 8 WEEK, INTRAVENOUS; SEE IMAGE
     Route: 042
     Dates: start: 20020415
  8. REMICADE [Suspect]
     Indication: RHEUMATOID ARTHRITIS
     Dosage: 200 MG, 1 IN 8 WEEK, INTRAVENOUS; SEE IMAGE
     Route: 042
     Dates: start: 20020626
  9. REMICADE [Suspect]
     Indication: RHEUMATOID ARTHRITIS
     Dosage: 200 MG, 1 IN 8 WEEK, INTRAVENOUS; SEE IMAGE
     Route: 042
     Dates: start: 20020821
  10. REMICADE [Suspect]
     Indication: RHEUMATOID ARTHRITIS
     Dosage: 200 MG, 1 IN 8 WEEK, INTRAVENOUS; SEE IMAGE
     Route: 042
     Dates: start: 20020919
  11. REMICADE [Suspect]
     Indication: RHEUMATOID ARTHRITIS
     Dosage: 200 MG, 1 IN 8 WEEK, INTRAVENOUS; SEE IMAGE
     Route: 042
     Dates: start: 20021023
  12. REMICADE [Suspect]
     Indication: RHEUMATOID ARTHRITIS
     Dosage: 200 MG, 1 IN 8 WEEK, INTRAVENOUS; SEE IMAGE
     Route: 042
     Dates: start: 20030210
  13. REMICADE [Suspect]
     Indication: RHEUMATOID ARTHRITIS
     Dosage: 200 MG, 1 IN 8 WEEK, INTRAVENOUS; SEE IMAGE
     Route: 042
     Dates: start: 20030407
  14. REMICADE [Suspect]
     Indication: RHEUMATOID ARTHRITIS
     Dosage: 200 MG, 1 IN 8 WEEK, INTRAVENOUS; SEE IMAGE
     Route: 042
     Dates: start: 20030603
  15. REMICADE [Suspect]
     Indication: RHEUMATOID ARTHRITIS
     Dosage: 200 MG, 1 IN 8 WEEK, INTRAVENOUS; SEE IMAGE
     Route: 042
     Dates: start: 20031218
  16. METHOTREXATE [Concomitant]

REACTIONS (1)
  - CEREBRAL HAEMORRHAGE [None]
